FAERS Safety Report 24322326 (Version 1)
Quarter: 2024Q3

REPORT INFORMATION
  Report Type: Report from Study
  Country: IT (occurrence: IT)
  Receive Date: 20240916
  Receipt Date: 20240916
  Transmission Date: 20241017
  Serious: Yes (Life-Threatening, Other)
  Sender: AUROBINDO
  Company Number: IT-AUROBINDO-AUR-APL-2024-044552

PATIENT

DRUGS (2)
  1. GEMCITABINE [Suspect]
     Active Substance: GEMCITABINE
     Indication: Brain neoplasm
     Dosage: 1000 MILLIGRAM/SQ. METER (EVERY 14-28 DAYS FOR 1-6 CYCLES)
     Route: 065
  2. OXALIPLATIN [Suspect]
     Active Substance: OXALIPLATIN
     Indication: Brain neoplasm
     Dosage: 100 MILLIGRAM/SQ. METER (EVERY 14-28 DAYS FOR 1-6 CYCLES)
     Route: 065

REACTIONS (3)
  - Platelet toxicity [Unknown]
  - Hyponatraemia [Unknown]
  - Hydrocephalus [Unknown]
